FAERS Safety Report 10976152 (Version 3)
Quarter: 2022Q3

REPORT INFORMATION
  Report Type: Spontaneous
  Country: US (occurrence: US)
  Receive Date: 20150401
  Receipt Date: 20220701
  Transmission Date: 20221027
  Serious: No
  Sender: FDA-Public Use
  Company Number: US-JNJFOC-20130513197

PATIENT
  Age: 30 Year
  Sex: Male
  Weight: 76.272 kg

DRUGS (3)
  1. RISPERDAL [Suspect]
     Active Substance: RISPERIDONE
     Indication: Sleep disorder
     Route: 048
     Dates: start: 2001, end: 200703
  2. RISPERDAL [Suspect]
     Active Substance: RISPERIDONE
     Indication: Hallucination
     Route: 048
     Dates: start: 2008, end: 20130416
  3. OLANZAPINE [Suspect]
     Active Substance: OLANZAPINE
     Indication: Product used for unknown indication
     Route: 065

REACTIONS (6)
  - Gynaecomastia [Unknown]
  - Mood swings [Unknown]
  - Weight increased [Unknown]
  - Emotional distress [Unknown]
  - Loss of personal independence in daily activities [Unknown]
  - Fatigue [Unknown]

NARRATIVE: CASE EVENT DATE: 20070209
